FAERS Safety Report 15632815 (Version 1)
Quarter: 2018Q4

REPORT INFORMATION
  Report Type: Spontaneous
  Country: US (occurrence: US)
  Receive Date: 20181119
  Receipt Date: 20181119
  Transmission Date: 20190205
  Serious: No
  Sender: FDA-Public Use
  Company Number: None

PATIENT
  Age: 74 Year
  Sex: Female
  Weight: 67.5 kg

DRUGS (1)
  1. FLUOROMETHOLONE 0.1 OPHTSUSP 5MG [Suspect]
     Active Substance: FLUOROMETHOLONE
     Indication: EYE INFLAMMATION
     Dosage: ?          QUANTITY:2 DROP(S);?
     Route: 047
     Dates: start: 20181116, end: 20181118

REACTIONS (6)
  - Muscular weakness [None]
  - Myalgia [None]
  - Dyspnoea [None]
  - Dizziness [None]
  - Mobility decreased [None]
  - Wheezing [None]

NARRATIVE: CASE EVENT DATE: 20181117
